FAERS Safety Report 8077022-5 (Version None)
Quarter: 2012Q1

REPORT INFORMATION
  Report Type: 
  Country: None (occurrence: None)
  Receive Date: 20120127
  Receipt Date: 20120120
  Transmission Date: 20120608
  Serious: Yes (Life-Threatening, Hospitalization)
  Sender: FDA-Public Use
  Company Number: PHHY2012CA005700

PATIENT
  Sex: Male

DRUGS (9)
  1. ISOPTIN [Concomitant]
  2. CRESTOR [Concomitant]
  3. CALCIUM CHANNEL BLOCKERS [Concomitant]
  4. DIURETICS [Concomitant]
  5. ANGIOTENSIN CONVERTING ENZYME BLOCKERS [Concomitant]
  6. AVALIDE [Concomitant]
  7. NORVASC [Concomitant]
     Dosage: 10 MG,  PER DAY
  8. ALISKIREN [Suspect]
     Indication: HYPERTENSION
     Dosage: 300 MG, A DAY
     Route: 048
     Dates: start: 20091217, end: 20091221
  9. OLMESARTAN MEDOXOMIL AND HYDROCHLOROTHIZIDE [Concomitant]
     Dosage: 40/125 MG PER DAY

REACTIONS (2)
  - HEMIANOPIA HOMONYMOUS [None]
  - CEREBROVASCULAR ACCIDENT [None]
